FAERS Safety Report 6844881-0 (Version None)
Quarter: 2010Q3

REPORT INFORMATION
  Report Type: 
  Country: None (occurrence: None)
  Receive Date: 20100713
  Receipt Date: 20100628
  Transmission Date: 20110219
  Serious: Yes (Other)
  Sender: FDA-Public Use
  Company Number: A-US2010-37701

PATIENT
  Age: 67 Year
  Sex: Female

DRUGS (1)
  1. VENTAVIS [Suspect]
     Indication: PULMONARY ARTERIAL HYPERTENSION
     Dosage: 10 UG, RESPIRATORY
     Route: 055
     Dates: start: 20100615

REACTIONS (3)
  - HALLUCINATION [None]
  - HEADACHE [None]
  - HYPOTENSION [None]
